FAERS Safety Report 9790934 (Version 1)
Quarter: 2013Q4

REPORT INFORMATION
  Report Type: Spontaneous
  Country: GB (occurrence: GB)
  Receive Date: 20131231
  Receipt Date: 20131231
  Transmission Date: 20140711
  Serious: Yes (Disabling)
  Sender: FDA-Public Use
  Company Number: PHFR2013GB007300

PATIENT
  Age: 66 Year
  Sex: Female

DRUGS (5)
  1. ZOLEDRONATE [Suspect]
     Indication: OSTEOPOROSIS
     Dosage: 5 MG
     Route: 042
     Dates: start: 20131211
  2. METFORMIN [Suspect]
     Dosage: UNK UKN, UNK
  3. OMEPRAZOLE [Suspect]
     Dosage: UNK UKN, UNK
  4. SIMVASTATIN [Suspect]
     Dosage: UNK UKN, UNK
  5. CALFOVIT D3 [Concomitant]
     Dosage: UNK UKN, UNK

REACTIONS (5)
  - Pain [Not Recovered/Not Resolved]
  - Bone pain [Not Recovered/Not Resolved]
  - Nausea [Not Recovered/Not Resolved]
  - Dyspnoea [Not Recovered/Not Resolved]
  - Vomiting [Not Recovered/Not Resolved]
